FAERS Safety Report 12167043 (Version 1)
Quarter: 2016Q1

REPORT INFORMATION
  Report Type: Spontaneous
  Country: US (occurrence: None)
  Receive Date: 20160309
  Receipt Date: 20160309
  Transmission Date: 20160526
  Serious: Yes (Death)
  Sender: FDA-Public Use
  Company Number: None

PATIENT
  Age: 23 Year
  Sex: Female
  Weight: 58.97 kg

DRUGS (1)
  1. ESCITALOPRAM (GENERIC FOR LEXAPRO) 1ST PRESCIPTION 10MG. 7/15/15 DOUBLED TO 20 MG. 8/25/15 . [Suspect]
     Active Substance: ESCITALOPRAM OXALATE
     Indication: ANXIETY
     Dosage: 10MG 7/10/15?15MG 8/25/2015
     Route: 048
     Dates: start: 20150710, end: 20150909

REACTIONS (4)
  - Thinking abnormal [None]
  - Prescribed overdose [None]
  - Partner stress [None]
  - Completed suicide [None]

NARRATIVE: CASE EVENT DATE: 20150909
